FAERS Safety Report 7403773-9 (Version None)
Quarter: 2011Q2

REPORT INFORMATION
  Report Type: 
  Country: None (occurrence: None)
  Receive Date: 20110408
  Receipt Date: 20110405
  Transmission Date: 20111010
  Serious: Yes (Hospitalization)
  Sender: FDA-Public Use
  Company Number: CA-ABBOTT-11P-028-0716943-00

PATIENT
  Sex: Male
  Weight: 89.892 kg

DRUGS (5)
  1. AVALIDE [Concomitant]
     Indication: HYPERTENSION
     Dates: start: 20060101
  2. PRO-FENO SUPER [Concomitant]
     Indication: LIVER DISORDER
     Dates: start: 19960101
  3. NEXIUM [Concomitant]
     Indication: BARRETT'S OESOPHAGUS
     Route: 048
     Dates: start: 20090101
  4. CHOLESTYRAMINE [Concomitant]
     Indication: CROHN'S DISEASE
     Dates: start: 19960101
  5. HUMIRA [Suspect]
     Indication: CROHN'S DISEASE
     Route: 058
     Dates: start: 20100604

REACTIONS (4)
  - SUBILEUS [None]
  - FISTULA [None]
  - CROHN'S DISEASE [None]
  - PNEUMONIA [None]
